FAERS Safety Report 8588881-1 (Version None)
Quarter: 2012Q3

REPORT INFORMATION
  Report Type: 
  Country: None (occurrence: None)
  Receive Date: 20120813
  Receipt Date: 20120808
  Transmission Date: 20120928
  Serious: Yes (Death, Other)
  Sender: FDA-Public Use
  Company Number: US-PFIZER INC-2012194460

PATIENT
  Age: 79 Year
  Sex: Male

DRUGS (1)
  1. XALKORI [Suspect]
     Indication: LUNG DISORDER
     Dosage: 200 MG, 2X/DAY (TWICE DAILY)

REACTIONS (1)
  - DEATH [None]
